APPROVED DRUG PRODUCT: FAMOTIDINE
Active Ingredient: FAMOTIDINE
Strength: 20MG
Dosage Form/Route: TABLET;ORAL
Application: A215630 | Product #001 | TE Code: AB
Applicant: VKT PHARMA PRIVATE LTD
Approved: Jan 7, 2022 | RLD: No | RS: No | Type: RX